FAERS Safety Report 17809644 (Version 2)
Quarter: 2020Q2

REPORT INFORMATION
  Report Type: Report from Study
  Country: None (occurrence: CA)
  Receive Date: 20200521
  Receipt Date: 20200622
  Transmission Date: 20200714
  Serious: Yes (Other)
  Sender: FDA-Public Use
  Company Number: CA-ABBVIE-20K-028-3408503-00

PATIENT
  Sex: Female

DRUGS (1)
  1. HUMIRA [Suspect]
     Active Substance: ADALIMUMAB
     Indication: CROHN^S DISEASE
     Route: 058
     Dates: start: 20170420

REACTIONS (5)
  - Diarrhoea [Unknown]
  - Ileal stenosis [Unknown]
  - Weight decreased [Unknown]
  - Asthenia [Unknown]
  - Small intestinal obstruction [Unknown]
